FAERS Safety Report 21042520 (Version 1)
Quarter: 2022Q3

REPORT INFORMATION
  Report Type: Spontaneous
  Country: US (occurrence: None)
  Receive Date: 20220701
  Receipt Date: 20220701
  Transmission Date: 20221027
  Serious: No
  Sender: FDA-Public Use
  Company Number: None

PATIENT
  Age: 67 Year
  Sex: Female
  Weight: 76.2 kg

DRUGS (19)
  1. CAPECITABINE [Suspect]
     Active Substance: CAPECITABINE
     Indication: Breast cancer female
     Dosage: FREQUENCY : TWICE A DAY;?
     Route: 048
  2. TYLENOL [Concomitant]
     Active Substance: ACETAMINOPHEN
  3. ATORVASTATIN [Concomitant]
     Active Substance: ATORVASTATIN
  4. CALCIUM CARBONATE VITAMIN D [Concomitant]
  5. ZYRTEC [Concomitant]
     Active Substance: CETIRIZINE HYDROCHLORIDE
  6. CITALOPRAM [Concomitant]
     Active Substance: CITALOPRAM HYDROBROMIDE
  7. DECADRON [Concomitant]
     Active Substance: DEXAMETHASONE
  8. EXEMESTANE [Concomitant]
     Active Substance: EXEMESTANE
  9. FASLODEX [Concomitant]
  10. FERGON [Concomitant]
     Active Substance: FERROUS GLUCONATE
  11. FLONASE [Concomitant]
  12. LORATADINE [Concomitant]
     Active Substance: LORATADINE
  13. MELOXICAM [Concomitant]
     Active Substance: MELOXICAM
  14. METFORMIN [Concomitant]
     Active Substance: METFORMIN HYDROCHLORIDE
  15. LOPRESSOR [Concomitant]
     Active Substance: METOPROLOL TARTRATE
  16. OMEPRAZOLE [Concomitant]
     Active Substance: OMEPRAZOLE
  17. ZOFRAN [Concomitant]
  18. VITAMIN B6 [Concomitant]
     Active Substance: PYRIDOXINE HYDROCHLORIDE
  19. ZARXIO [Concomitant]
     Active Substance: FILGRASTIM-SNDZ

REACTIONS (1)
  - Disease progression [None]
